FAERS Safety Report 8537382-5 (Version None)
Quarter: 2012Q3

REPORT INFORMATION
  Report Type: 
  Country: None (occurrence: None)
  Receive Date: 20120725
  Receipt Date: 20120718
  Transmission Date: 20120928
  Serious: Yes (Other)
  Sender: FDA-Public Use
  Company Number: US-CELGENEUS-163-21880-12050469

PATIENT
  Sex: Female
  Weight: 114 kg

DRUGS (20)
  1. TYLENOL [Concomitant]
     Route: 065
  2. TRAMADOL HYDROCHLORIDE [Concomitant]
     Route: 065
  3. ASPIRIN [Concomitant]
     Route: 065
  4. SPIRIVA [Concomitant]
     Route: 065
  5. SYMBICORT [Concomitant]
     Route: 065
  6. THEOPHYLLINE [Concomitant]
     Route: 065
  7. REVLIMID [Suspect]
     Dosage: 15 MILLIGRAM
     Route: 048
     Dates: start: 20120501
  8. K-TAB [Concomitant]
     Route: 065
  9. ALDACTONE [Concomitant]
     Route: 065
  10. NITROGLYCERIN [Concomitant]
     Route: 065
  11. LASIX [Concomitant]
     Route: 065
  12. COMBIVENT [Concomitant]
     Route: 065
  13. REVLIMID [Suspect]
     Indication: MULTIPLE MYELOMA
     Dosage: 25 MILLIGRAM
     Route: 048
     Dates: start: 20120329
  14. LISINOPRIL [Concomitant]
     Route: 065
  15. NOVOLOG [Concomitant]
     Route: 065
  16. TEKTURNA [Concomitant]
     Route: 065
  17. HYTRIN [Concomitant]
     Route: 065
  18. TOPROL-XL [Concomitant]
     Route: 065
  19. PLAVIX [Concomitant]
     Route: 065
  20. NIASPAN [Concomitant]
     Route: 065

REACTIONS (6)
  - INFLUENZA [None]
  - HYPERGLYCAEMIA [None]
  - ANAEMIA [None]
  - DYSPNOEA [None]
  - RASH ERYTHEMATOUS [None]
  - GASTROINTESTINAL DISORDER [None]
